FAERS Safety Report 16956330 (Version 1)
Quarter: 2019Q4

REPORT INFORMATION
  Report Type: Spontaneous
  Country: US (occurrence: US)
  Receive Date: 20191024
  Receipt Date: 20191024
  Transmission Date: 20200122
  Serious: Yes (Other)
  Sender: FDA-Public Use
  Company Number: US-PFIZER INC-2019284959

PATIENT
  Age: 80 Year
  Sex: Female

DRUGS (1)
  1. LYRICA [Suspect]
     Active Substance: PREGABALIN
     Indication: RESTLESS LEGS SYNDROME
     Dosage: 250 MG, DAILY (TAKE 2 CAPSULES IN AM AND 3 CAPSULES IN PM)

REACTIONS (3)
  - Off label use [Unknown]
  - Dementia [Unknown]
  - Product use in unapproved indication [Unknown]
